FAERS Safety Report 7521013-7 (Version None)
Quarter: 2011Q2

REPORT INFORMATION
  Report Type: 
  Country: None (occurrence: None)
  Receive Date: 20110603
  Receipt Date: 20101115
  Transmission Date: 20111010
  Serious: Yes (Hospitalization)
  Sender: FDA-Public Use
  Company Number: US-BAYER-201016882NA

PATIENT
  Age: 40 Year
  Sex: Female
  Weight: 100 kg

DRUGS (6)
  1. YAZ [Suspect]
     Indication: PRODUCT USED FOR UNKNOWN INDICATION
     Route: 048
     Dates: start: 20070901, end: 20071015
  2. NSAID'S [Concomitant]
     Dosage: 20 PLUS YEARS
  3. NORVASC [Concomitant]
     Route: 048
  4. MOTRIN [Concomitant]
     Dosage: 20 PLUS YEARS
  5. LISINOPRIL [Concomitant]
     Route: 048
  6. METRONIDAZOLE [Concomitant]
     Dosage: 0.75%
     Route: 067

REACTIONS (6)
  - DYSPNOEA EXERTIONAL [None]
  - DEEP VEIN THROMBOSIS [None]
  - PULMONARY EMBOLISM [None]
  - PAIN IN EXTREMITY [None]
  - CHEST PAIN [None]
  - CHEST DISCOMFORT [None]
